FAERS Safety Report 11124706 (Version 1)
Quarter: 2015Q2

REPORT INFORMATION
  Report Type: Spontaneous
  Country: DE (occurrence: DE)
  Receive Date: 20150520
  Receipt Date: 20150520
  Transmission Date: 20150821
  Serious: Yes (Hospitalization, Other)
  Sender: FDA-Public Use
  Company Number: DE-CIPLA LTD.-2015DE03902

PATIENT

DRUGS (6)
  1. BIPERIDEN [Suspect]
     Active Substance: BIPERIDEN
     Indication: SCHIZOPHRENIA
     Dosage: 2 MG, UNK
     Route: 065
  2. BIPERIDEN [Suspect]
     Active Substance: BIPERIDEN
     Indication: DEPRESSION
  3. MIRTAZAPINE. [Suspect]
     Active Substance: MIRTAZAPINE
     Indication: DEPRESSION
     Dosage: 60 MG, UNK
  4. RISPERIDONE. [Suspect]
     Active Substance: RISPERIDONE
     Indication: SCHIZOPHRENIA
     Dosage: 8 MG, UNK
     Route: 065
  5. RISPERIDONE. [Suspect]
     Active Substance: RISPERIDONE
     Indication: DEPRESSION
     Dosage: 3 MG, QD
  6. MIRTAZAPINE. [Suspect]
     Active Substance: MIRTAZAPINE
     Indication: SCHIZOPHRENIA
     Dosage: 45 MG, UNK
     Route: 065

REACTIONS (4)
  - Pulmonary embolism [Recovered/Resolved]
  - Treatment failure [Unknown]
  - Venous thrombosis [Recovered/Resolved]
  - Rhabdomyolysis [Recovered/Resolved]
